FAERS Safety Report 10429073 (Version 1)
Quarter: 2014Q3

REPORT INFORMATION
  Report Type: Spontaneous
  Country: GB (occurrence: GB)
  Receive Date: 20140904
  Receipt Date: 20140904
  Transmission Date: 20150326
  Serious: Yes (Other)
  Sender: FDA-Public Use
  Company Number: GB-AUROBINDO-AUR-APL-2014-09248

PATIENT
  Age: 62 Year
  Sex: Female

DRUGS (1)
  1. NAPROXEN TABLETS 500 MG (NAPROXEN) TABLET, 500MG [Suspect]
     Active Substance: NAPROXEN
     Indication: SCIATICA
     Dosage: 500 MG IN THE MORNING AND HALF TABLET (250MG) IN THE EVENING
     Route: 065
     Dates: start: 20140811, end: 20140811

REACTIONS (3)
  - Condition aggravated [Not Recovered/Not Resolved]
  - Intentional product misuse [Not Recovered/Not Resolved]
  - Hypoaesthesia [Not Recovered/Not Resolved]

NARRATIVE: CASE EVENT DATE: 20140811
